FAERS Safety Report 7408255-6 (Version None)
Quarter: 2011Q2

REPORT INFORMATION
  Report Type: 
  Country: None (occurrence: None)
  Receive Date: 20110412
  Receipt Date: 20110309
  Transmission Date: 20111010
  Serious: No
  Sender: FDA-Public Use
  Company Number: A0918089A

PATIENT
  Sex: Male

DRUGS (1)
  1. JALYN [Suspect]

REACTIONS (5)
  - SEMEN VOLUME DECREASED [None]
  - LOSS OF LIBIDO [None]
  - FLUID RETENTION [None]
  - WEIGHT INCREASED [None]
  - THERAPEUTIC RESPONSE UNEXPECTED [None]
